FAERS Safety Report 20864034 (Version 1)
Quarter: 2022Q2

REPORT INFORMATION
  Report Type: Spontaneous
  Country: IL (occurrence: IL)
  Receive Date: 20220523
  Receipt Date: 20220523
  Transmission Date: 20220721
  Serious: Yes (Hospitalization)
  Sender: FDA-Public Use
  Company Number: IL-009507513-2205ISR005125

PATIENT
  Age: 70 Year
  Sex: Female

DRUGS (2)
  1. TUKYSA [Suspect]
     Active Substance: TUCATINIB
     Indication: Breast cancer metastatic
     Dosage: UNK
     Route: 048
  2. TUKYSA [Suspect]
     Active Substance: TUCATINIB
     Indication: HER2 positive breast cancer

REACTIONS (3)
  - Disease complication [Unknown]
  - Dysphagia [Unknown]
  - Product administered from unauthorised provider [Unknown]

NARRATIVE: CASE EVENT DATE: 20220501
